FAERS Safety Report 8619937-2 (Version None)
Quarter: 2012Q3

REPORT INFORMATION
  Report Type: 
  Country: None (occurrence: None)
  Receive Date: 20120824
  Receipt Date: 20120802
  Transmission Date: 20120928
  Serious: No
  Sender: FDA-Public Use
  Company Number: US-009507513-1208USA002402

PATIENT

DRUGS (4)
  1. SAPHRIS [Suspect]
     Indication: BIPOLAR DISORDER
     Dosage: 5 MG, BID
     Route: 060
     Dates: start: 20120701
  2. LAMICTAL [Concomitant]
  3. CYMBALTA [Concomitant]
  4. CLONAPINE [Concomitant]

REACTIONS (1)
  - BLOOD PROLACTIN INCREASED [None]
